FAERS Safety Report 4747379-9 (Version None)
Quarter: 2005Q3

REPORT INFORMATION
  Report Type: 
  Country: None (occurrence: None)
  Receive Date: 20050816
  Receipt Date: 20050805
  Transmission Date: 20060218
  Serious: Yes (Hospitalization)
  Sender: FDA-Public Use
  Company Number: 200512453GDS

PATIENT
  Age: 73 Year
  Sex: Female

DRUGS (15)
  1. ASPIRIN [Suspect]
     Dosage: 100 MG, TOTAL DAILY, ORAL
     Route: 048
  2. IRFEN (IBUPROFEN) [Suspect]
     Indication: FALL
     Dosage: 1600 MG, TOTAL DAILY, ORAL
     Route: 048
     Dates: start: 20050201, end: 20050601
  3. IRFEN (IBUPROFEN) [Suspect]
     Indication: SACRAL PAIN
     Dosage: 1600 MG, TOTAL DAILY, ORAL
     Route: 048
     Dates: start: 20050201, end: 20050601
  4. OXYCONTIN [Suspect]
     Indication: FALL
     Dosage: 20 MG, TOTAL DAILY, ORAL
     Route: 048
     Dates: start: 20050201, end: 20050601
  5. OXYCONTIN [Suspect]
     Indication: SACRAL PAIN
     Dosage: 20 MG, TOTAL DAILY, ORAL
     Route: 048
     Dates: start: 20050201, end: 20050601
  6. ENALAPRIL /HCTZ (ENALAPRIL W/HYDROCHLOROTHIAZIDE) [Suspect]
     Indication: HYPERTENSION
     Dosage: ORAL
     Route: 048
     Dates: end: 20050601
  7. GLUCOPHAGE [Concomitant]
  8. CO-RENITEN [Concomitant]
  9. ENOXAPARIN SODIUM [Concomitant]
  10. CARDURA [Concomitant]
  11. PRAVASTATIN SODIUM [Concomitant]
  12. LANTUS [Concomitant]
  13. LOPRESSOR [Concomitant]
  14. ELTROXIN [Concomitant]
  15. PANTOZOL [Concomitant]

REACTIONS (5)
  - ANOREXIA [None]
  - CONSTIPATION [None]
  - NAUSEA [None]
  - RENAL FAILURE ACUTE [None]
  - VOMITING [None]
